FAERS Safety Report 6336782-1 (Version None)
Quarter: 2009Q3

REPORT INFORMATION
  Report Type: 
  Country: None (occurrence: None)
  Receive Date: 20090831
  Receipt Date: 20090831
  Transmission Date: 20100115
  Serious: No
  Sender: FDA-Public Use
  Company Number: None

PATIENT
  Age: 55 Year
  Sex: Female
  Weight: 65.7716 kg

DRUGS (1)
  1. REGLAN [Suspect]
     Dosage: 10 MG? ONCE DAILY PO
     Route: 048
     Dates: start: 20070902, end: 20070920

REACTIONS (8)
  - DYSGRAPHIA [None]
  - DYSKINESIA [None]
  - DYSTONIA [None]
  - HYPOTHALAMO-PITUITARY DISORDER [None]
  - INJURY [None]
  - PROCEDURAL COMPLICATION [None]
  - SPEECH DISORDER [None]
  - TARDIVE DYSKINESIA [None]
